FAERS Safety Report 11512954 (Version 2)
Quarter: 2015Q3

REPORT INFORMATION
  Report Type: Spontaneous
  Country: US (occurrence: US)
  Receive Date: 20150903
  Receipt Date: 20150903
  Transmission Date: 20151125
  Serious: No
  Sender: FDA-Public Use
  Company Number: US-ELI_LILLY_AND_COMPANY-US200907005042

PATIENT
  Sex: Female

DRUGS (3)
  1. HUMALOG [Suspect]
     Active Substance: INSULIN LISPRO
     Dosage: UNK, UNK
  2. HUMALOG [Suspect]
     Active Substance: INSULIN LISPRO
     Dosage: UNK, UNK
  3. HUMALOG [Suspect]
     Active Substance: INSULIN LISPRO

REACTIONS (6)
  - Incorrect product storage [Unknown]
  - Medication error [Unknown]
  - Blood glucose increased [Unknown]
  - Injection site pain [Unknown]
  - Poor quality drug administered [Unknown]
  - Stress [Unknown]
